FAERS Safety Report 10203907 (Version 1)
Quarter: 2014Q2

REPORT INFORMATION
  Report Type: Spontaneous
  Country: US (occurrence: None)
  Receive Date: 20140523
  Receipt Date: 20140523
  Transmission Date: 20141212
  Serious: Yes (Hospitalization)
  Sender: FDA-Public Use
  Company Number: AT-LHC-2014039

PATIENT
  Age: 74 Year
  Sex: Male
  Weight: 78 kg

DRUGS (4)
  1. CONOXIA [Suspect]
     Indication: PULMONARY FIBROSIS
     Route: 055
     Dates: start: 20101028
  2. ESBRIET (PIRFENIDON) [Concomitant]
  3. BERODUAL  (FENOTEROL/IPRATROPIUM) (AEROSOL FOR INHALATION) [Concomitant]
  4. AMBROXOL [Concomitant]

REACTIONS (10)
  - Hypoxia [None]
  - Fall [None]
  - Loss of consciousness [None]
  - Fear [None]
  - Fatigue [None]
  - Palpitations [None]
  - Medical device complication [None]
  - General physical health deterioration [None]
  - Dyspnoea [None]
  - Panic reaction [None]
